FAERS Safety Report 16289574 (Version 1)
Quarter: 2019Q2

REPORT INFORMATION
  Report Type: Spontaneous
  Country: AT (occurrence: AT)
  Receive Date: 20190509
  Receipt Date: 20190509
  Transmission Date: 20190711
  Serious: Yes (Other)
  Sender: FDA-Public Use
  Company Number: AT-ACCORD-126569

PATIENT
  Age: 30 Year
  Sex: Female
  Weight: 114 kg

DRUGS (5)
  1. PREGABALIN. [Suspect]
     Active Substance: PREGABALIN
     Indication: SCHIZOPHRENIA
     Dosage: 600 MG, QD
  2. VALPROIC ACID. [Suspect]
     Active Substance: VALPROIC ACID
     Indication: SCHIZOPHRENIA
     Dosage: 1000 MG, QD
  3. CLOZAPINE. [Suspect]
     Active Substance: CLOZAPINE
     Indication: CONDITION AGGRAVATED
     Dosage: 400 MG, QD
  4. VENLAFAXINE [Suspect]
     Active Substance: VENLAFAXINE HYDROCHLORIDE
     Indication: SCHIZOPHRENIA
     Dosage: 300 MG, QD
  5. RISPERIDONE. [Suspect]
     Active Substance: RISPERIDONE
     Indication: CONDITION AGGRAVATED
     Dosage: 8 MG, QD

REACTIONS (3)
  - Therapy non-responder [Unknown]
  - Suicidal ideation [Recovered/Resolved]
  - Major depression [Recovered/Resolved]
